FAERS Safety Report 5404553-6 (Version None)
Quarter: 2007Q3

REPORT INFORMATION
  Report Type: 
  Country: None (occurrence: None)
  Receive Date: 20070802
  Receipt Date: 20070725
  Transmission Date: 20080115
  Serious: Yes (Other)
  Sender: FDA-Public Use
  Company Number: US-TYCO HEALTHCARE/MALLINCKRODT-T200700840

PATIENT

DRUGS (1)
  1. CONRAY [Suspect]
     Dosage: 50 ML, SINGLE

REACTIONS (3)
  - DRUG ADMINISTRATION ERROR [None]
  - DYSPNOEA [None]
  - PNEUMOTHORAX [None]
